FAERS Safety Report 6994149-7 (Version None)
Quarter: 2010Q3

REPORT INFORMATION
  Report Type: 
  Country: None (occurrence: None)
  Receive Date: 20100917
  Receipt Date: 20100201
  Transmission Date: 20110219
  Serious: Yes (Hospitalization, Disabling)
  Sender: FDA-Public Use
  Company Number: US-ASTRAZENECA-2009SE16726

PATIENT
  Age: 3775 Day
  Sex: Male
  Weight: 27.7 kg

DRUGS (6)
  1. SEROQUEL [Suspect]
     Indication: AFFECTIVE DISORDER
     Route: 048
     Dates: start: 20090801, end: 20090915
  2. SEROQUEL [Suspect]
     Indication: BIPOLAR DISORDER
     Route: 048
     Dates: start: 20090801, end: 20090915
  3. DEXADRINE [Concomitant]
     Indication: ATTENTION DEFICIT/HYPERACTIVITY DISORDER
     Route: 048
     Dates: start: 20040816
  4. DEPAKOTE [Concomitant]
     Indication: BIPOLAR DISORDER
     Dosage: 250 MG EVERY MORNING AND 375 MG EVERY HOUR OF SLEEP
     Route: 048
     Dates: start: 20080104
  5. TRAZODONE HCL [Concomitant]
     Indication: INSOMNIA
     Dosage: 150 MG EVERY HOUR OF SLEEP
     Route: 048
     Dates: start: 20070123
  6. ZYPREXA [Concomitant]
     Dates: start: 20090801

REACTIONS (8)
  - CHEST PAIN [None]
  - CYANOSIS [None]
  - DECREASED APPETITE [None]
  - DYSKINESIA [None]
  - DYSTONIA [None]
  - ELECTROCARDIOGRAM ABNORMAL [None]
  - LETHARGY [None]
  - WEIGHT DECREASED [None]
